FAERS Safety Report 5091501-4 (Version None)
Quarter: 2006Q3

REPORT INFORMATION
  Report Type: 
  Country: None (occurrence: None)
  Receive Date: 20060727
  Receipt Date: 20060412
  Transmission Date: 20061208
  Serious: Yes (Other)
  Sender: FDA-Public Use
  Company Number: 2006051776

PATIENT
  Age: 54 Year
  Sex: Male
  Weight: 97.5234 kg

DRUGS (13)
  1. LYRICA [Suspect]
     Indication: PAIN
     Dosage: 150 MG (75 MG,2 IN 1 D),ORAL
     Route: 048
     Dates: start: 20060301, end: 20060326
  2. GABAPENTIN [Suspect]
     Indication: PAIN
     Dosage: 3200 MG (800 MG,4 IN 1 D)
     Dates: start: 20040101, end: 20060301
  3. ATENOLOL [Concomitant]
  4. VENLAFAXINE HCL [Concomitant]
  5. LIPITOR [Concomitant]
  6. ASPIRIN [Concomitant]
  7. ALPRAZOLAM [Concomitant]
  8. PREVACID [Concomitant]
  9. HYDROCODONE BITARTRATE + ACETAMINOPHEN [Concomitant]
  10. AMITRIPTYLINE HCL [Concomitant]
  11. MULTIVITAMIN [Concomitant]
  12. GLUCOSAMINE/HERBALS/MINERALS/MSM/VITAMINS (GLUCOSAMINE, HERBAL NOS, ME [Concomitant]
  13. GLUCOSAMINE (GLUCOSAMINE) [Concomitant]

REACTIONS (2)
  - DISTURBANCE IN ATTENTION [None]
  - DRUG INEFFECTIVE [None]
